FAERS Safety Report 9477194 (Version 1)
Quarter: 2013Q3

REPORT INFORMATION
  Report Type: Not Available
  Country: US (occurrence: US)
  Receive Date: 20130826
  Receipt Date: 20130826
  Transmission Date: 20140515
  Serious: No
  Sender: FDA-Public Use
  Company Number: US-AMARIN PHARMA, INC.-2013AMR000045

PATIENT
  Age: 65 Year
  Sex: Female

DRUGS (1)
  1. VASCEPA [Suspect]
     Indication: BLOOD TRIGLYCERIDES INCREASED
     Route: 048
     Dates: start: 20130304, end: 20130611

REACTIONS (1)
  - Blood triglycerides increased [Not Recovered/Not Resolved]
